FAERS Safety Report 18872574 (Version 1)
Quarter: 2021Q1

REPORT INFORMATION
  Report Type: Spontaneous
  Country: US (occurrence: US)
  Receive Date: 20210210
  Receipt Date: 20210210
  Transmission Date: 20210420
  Serious: No
  Sender: FDA-Public Use
  Company Number: None

PATIENT
  Age: 71 Year
  Sex: Female

DRUGS (9)
  1. LOSARTAN. [Concomitant]
     Active Substance: LOSARTAN
     Dates: start: 20210210
  2. POSTASSIUM GLUCONATE [Concomitant]
     Dates: start: 20200210
  3. CALCIUM [Concomitant]
     Active Substance: CALCIUM
     Dates: start: 20210210
  4. MAGNESIUM [Concomitant]
     Active Substance: MAGNESIUM
     Dates: start: 20210210
  5. ERIVEDGE [Suspect]
     Active Substance: VISMODEGIB
     Indication: SKIN CANCER
     Dosage: ?          OTHER FREQUENCY:EVERY OTHER DAY;?
     Route: 048
     Dates: start: 20200808
  6. DETROL LA CAPSULES [Concomitant]
     Dates: start: 20200818
  7. VITAMIN D3 [Concomitant]
     Active Substance: CHOLECALCIFEROL
     Dates: start: 20200818
  8. MULTIVITAMIN ADLT 50+ [Concomitant]
     Dates: start: 20210210
  9. LIPITOR [Concomitant]
     Active Substance: ATORVASTATIN CALCIUM
     Dates: start: 20200818

REACTIONS (2)
  - Muscle spasms [None]
  - Fatigue [None]

NARRATIVE: CASE EVENT DATE: 20201124
